FAERS Safety Report 10472484 (Version 4)
Quarter: 2014Q4

REPORT INFORMATION
  Report Type: Spontaneous
  Country: DK (occurrence: DK)
  Receive Date: 20140924
  Receipt Date: 20141007
  Transmission Date: 20150528
  Serious: Yes (Hospitalization, Disabling, Other)
  Sender: FDA-Public Use
  Company Number: DK-JNJFOC-20140913999

PATIENT
  Age: 50 Year
  Sex: Female

DRUGS (6)
  1. REMICADE [Suspect]
     Active Substance: INFLIXIMAB
     Indication: CROHN^S DISEASE
     Route: 042
  2. REMICADE [Suspect]
     Active Substance: INFLIXIMAB
     Indication: CROHN^S DISEASE
     Route: 042
  3. REMICADE [Suspect]
     Active Substance: INFLIXIMAB
     Indication: CROHN^S DISEASE
     Route: 042
     Dates: start: 20090713, end: 2010
  4. PREDNISOLONE. [Concomitant]
     Active Substance: PREDNISOLONE
     Indication: CROHN^S DISEASE
     Route: 065
     Dates: start: 2009
  5. REMICADE [Suspect]
     Active Substance: INFLIXIMAB
     Indication: CROHN^S DISEASE
     Route: 042
     Dates: start: 20060627, end: 200606
  6. REMICADE [Suspect]
     Active Substance: INFLIXIMAB
     Indication: CROHN^S DISEASE
     Route: 042
     Dates: start: 20041223, end: 20050209

REACTIONS (27)
  - Sensory disturbance [Unknown]
  - Paraesthesia [Unknown]
  - Hypoaesthesia [Not Recovered/Not Resolved]
  - Temperature intolerance [Not Recovered/Not Resolved]
  - Hyperhidrosis [Not Recovered/Not Resolved]
  - Infection susceptibility increased [Unknown]
  - Back pain [Unknown]
  - Arthralgia [Unknown]
  - Skin infection [Unknown]
  - Bursitis infective [Recovering/Resolving]
  - Abdominal pain upper [Unknown]
  - Neuropathy peripheral [Unknown]
  - Surgery [Unknown]
  - Intestinal stenosis [Unknown]
  - Spinal cord compression [Unknown]
  - Musculoskeletal discomfort [Unknown]
  - Venous injury [Unknown]
  - Burning sensation [Not Recovered/Not Resolved]
  - Hormone level abnormal [Unknown]
  - Pain [Unknown]
  - Muscle spasms [Unknown]
  - Pain [Unknown]
  - Musculoskeletal pain [Unknown]
  - Neuritis [Unknown]
  - Bone disorder [Unknown]
  - Rotator cuff syndrome [Unknown]
  - Angiopathy [Not Recovered/Not Resolved]

NARRATIVE: CASE EVENT DATE: 2009
